FAERS Safety Report 4382391-3 (Version None)
Quarter: 2004Q2

REPORT INFORMATION
  Report Type: 
  Country: None (occurrence: None)
  Receive Date: 20040621
  Receipt Date: 20040621
  Transmission Date: 20050107
  Serious: Yes (Hospitalization)
  Sender: FDA-Public Use
  Company Number: None

PATIENT
  Sex: Female
  Weight: 72.3 kg

DRUGS (1)
  1. ZETIA [Suspect]
     Indication: HYPERCHOLESTEROLAEMIA
     Dosage: 10 MG DAILY ORAL
     Route: 048
     Dates: start: 20040105, end: 20040614

REACTIONS (3)
  - HYPERGLYCAEMIA [None]
  - PANCYTOPENIA [None]
  - PYREXIA [None]
